FAERS Safety Report 7129420-1 (Version None)
Quarter: 2010Q4

REPORT INFORMATION
  Report Type: 
  Country: None (occurrence: None)
  Receive Date: 20101130
  Receipt Date: 20101125
  Transmission Date: 20110411
  Serious: Yes (Life-Threatening)
  Sender: FDA-Public Use
  Company Number: JP-ASTRAZENECA-2010SE56009

PATIENT
  Age: 48 Year
  Sex: Male

DRUGS (4)
  1. ZESTRIL [Suspect]
     Indication: HYPERTENSION
     Dosage: UNDERLYING DISEASE
     Route: 048
  2. CARVEDILOL [Suspect]
     Indication: HYPERTENSION
     Dosage: UNDERLYING DISEASE
     Route: 048
  3. NIFEDIPINE [Suspect]
     Indication: HYPERTENSION
     Dosage: UNDERLYING DISEASE
     Route: 048
  4. OLMESARTAN MEDOXOMIL [Suspect]
     Indication: HYPERTENSION
     Dosage: UNDERLYING DISEASE
     Route: 048

REACTIONS (4)
  - HYPOTENSION [None]
  - MULTI-ORGAN FAILURE [None]
  - MULTIPLE DRUG OVERDOSE [None]
  - RENAL IMPAIRMENT [None]
